FAERS Safety Report 4955781-5 (Version None)
Quarter: 2006Q1

REPORT INFORMATION
  Report Type: 
  Country: None (occurrence: None)
  Receive Date: 20060328
  Receipt Date: 20060317
  Transmission Date: 20060701
  Serious: Yes (Hospitalization)
  Sender: FDA-Public Use
  Company Number: JP-JNJFOC-20060206116

PATIENT
  Sex: Female
  Weight: 54 kg

DRUGS (4)
  1. REMICADE [Suspect]
     Route: 042
  2. REMICADE [Suspect]
     Indication: CROHN'S DISEASE
     Route: 042
  3. PROMAC [Concomitant]
     Route: 048
  4. PENTASA [Concomitant]
     Dosage: 2.25 GRAM DAILY AND 750 MG DAILY
     Route: 048

REACTIONS (5)
  - BLOOD PRESSURE DECREASED [None]
  - HEADACHE [None]
  - HYPOAESTHESIA [None]
  - INFUSION RELATED REACTION [None]
  - OEDEMA [None]
